FAERS Safety Report 18240437 (Version 2)
Quarter: 2020Q4

REPORT INFORMATION
  Report Type: Spontaneous
  Country: US (occurrence: US)
  Receive Date: 20200908
  Receipt Date: 20201028
  Transmission Date: 20210113
  Serious: No
  Sender: FDA-Public Use
  Company Number: US-TEVA-2020-US-1823944

PATIENT
  Age: 19 Year
  Sex: Male

DRUGS (6)
  1. AUSTEDO [Suspect]
     Active Substance: DEUTETRABENAZINE
     Indication: TORTICOLLIS
     Dosage: 24 MILLIGRAM DAILY;
     Route: 065
     Dates: start: 202008
  2. AUSTEDO [Suspect]
     Active Substance: DEUTETRABENAZINE
     Dosage: 12 MILLIGRAM DAILY;
     Route: 065
  3. SINEMET [Concomitant]
     Active Substance: CARBIDOPA\LEVODOPA
  4. AUSTEDO [Suspect]
     Active Substance: DEUTETRABENAZINE
     Dosage: 18 MILLIGRAM DAILY;
     Route: 065
  5. VALIUM [Concomitant]
     Active Substance: DIAZEPAM
  6. JEVITY [Concomitant]
     Active Substance: DIETARY SUPPLEMENT
     Dosage: BOLUS TUBE FEEDINGS

REACTIONS (12)
  - Feeding disorder [Unknown]
  - Somnolence [Unknown]
  - Speech disorder [Unknown]
  - Dyskinesia [Not Recovered/Not Resolved]
  - Dyskinesia [Unknown]
  - Wrong technique in product usage process [Unknown]
  - Drooling [Unknown]
  - Drug ineffective for unapproved indication [Unknown]
  - Gait disturbance [Unknown]
  - Muscle swelling [Unknown]
  - Product use in unapproved indication [Unknown]
  - Dysphagia [Unknown]

NARRATIVE: CASE EVENT DATE: 2020
